FAERS Safety Report 7693774-8 (Version None)
Quarter: 2011Q3

REPORT INFORMATION
  Report Type: 
  Country: None (occurrence: None)
  Receive Date: 20110819
  Receipt Date: 20110629
  Transmission Date: 20111222
  Serious: No
  Sender: FDA-Public Use
  Company Number: US-ALLERGAN-1108906US

PATIENT
  Age: 33 Year
  Sex: Male

DRUGS (1)
  1. LASTACAFT [Suspect]
     Indication: CONJUNCTIVITIS ALLERGIC
     Dosage: 1 GTT, UNK
     Route: 047
     Dates: start: 20110328, end: 20110526

REACTIONS (1)
  - EYE INFLAMMATION [None]
